FAERS Safety Report 5199009-2 (Version None)
Quarter: 2007Q1

REPORT INFORMATION
  Report Type: 
  Country: None (occurrence: None)
  Receive Date: 20070104
  Receipt Date: 20070102
  Transmission Date: 20070707
  Serious: Yes (Other)
  Sender: FDA-Public Use
  Company Number: NL-BAYER-200614647GDS

PATIENT
  Sex: Female

DRUGS (2)
  1. AVELOX [Suspect]
     Indication: PYREXIA
     Route: 065
  2. IBUPROFEN [Concomitant]
     Indication: DRUG USE FOR UNKNOWN INDICATION
     Route: 065

REACTIONS (3)
  - IRIS HYPOPIGMENTATION [None]
  - MYDRIASIS [None]
  - PHOTOPHOBIA [None]
